FAERS Safety Report 8734143 (Version 4)
Quarter: 2012Q4

REPORT INFORMATION
  Report Type: 
  Country: US (occurrence: US)
  Receive Date: 20120821
  Receipt Date: 20120920
  Transmission Date: 20130627
  Serious: Yes (Other)
  Sender: FDA-Public Use
  Company Number: US-PFIZER INC-2012203439

PATIENT
  Age: 37 Year
  Sex: Male
  Weight: 159 kg

DRUGS (8)
  1. CHANTIX [Suspect]
     Indication: SMOKING CESSATION THERAPY
     Dosage: 0.5 mg, daily
     Route: 048
     Dates: start: 20120805, end: 201208
  2. CHANTIX [Suspect]
     Dosage: 1 mg, 2x/day
     Route: 048
     Dates: start: 201208, end: 20120816
  3. TRAZODONE [Concomitant]
     Indication: SCHIZOPHRENIA
     Dosage: splitting 50 mg tablets into half daily at night
     Route: 048
  4. TRAZODONE [Concomitant]
     Dosage: 50 mg, daily, at night
     Route: 048
  5. RISPERIDONE [Concomitant]
     Indication: SCHIZOPHRENIA
     Dosage: half a tablet of 2 mg in the morning and one tablet of 2 mg at night
     Route: 048
  6. RISPERIDONE [Concomitant]
     Dosage: 3 mg, daily
     Route: 048
  7. DIOVAN [Concomitant]
     Indication: HYPERTENSION
     Dosage: 160 mg, daily
  8. SIMVASTATIN [Concomitant]
     Indication: BLOOD CHOLESTEROL ABNORMAL
     Dosage: 40 mg daily at night

REACTIONS (10)
  - Mood swings [Recovered/Resolved]
  - Aggression [Recovered/Resolved]
  - Agitation [Recovered/Resolved]
  - Hostility [Unknown]
  - Abnormal behaviour [Recovered/Resolved]
  - Abnormal dreams [Recovered/Resolved]
  - Feeling abnormal [Recovered/Resolved]
  - Tension [Recovered/Resolved]
  - Stress [Recovered/Resolved]
  - Depressed mood [Recovered/Resolved]
